FAERS Safety Report 11428820 (Version 1)
Quarter: 2015Q3

REPORT INFORMATION
  Report Type: Spontaneous
  Country: US (occurrence: US)
  Receive Date: 20150828
  Receipt Date: 20150828
  Transmission Date: 20151125
  Serious: No
  Sender: FDA-Public Use
  Company Number: US-ROCHE-1193775

PATIENT
  Age: 65 Year
  Sex: Female
  Weight: 64.92 kg

DRUGS (5)
  1. PEGASYS [Suspect]
     Active Substance: PEGINTERFERON ALFA-2A
     Dosage: PROCLICK AUTOINJECTOR
     Route: 058
     Dates: start: 20130211
  2. PEGASYS [Suspect]
     Active Substance: PEGINTERFERON ALFA-2A
     Indication: HEPATITIS C
     Route: 065
     Dates: start: 2008
  3. RIBASPHERE [Suspect]
     Active Substance: RIBAVIRIN
     Indication: HEPATITIS C
     Dosage: 600/400 IN DIVIDED DOSES DAILY
     Route: 048
     Dates: start: 20130211
  4. PHENYTOIN. [Concomitant]
     Active Substance: PHENYTOIN
     Dosage: AT NIGHT
     Route: 048
  5. ZOLPIDEM [Concomitant]
     Active Substance: ZOLPIDEM\ZOLPIDEM TARTRATE
     Route: 048

REACTIONS (6)
  - Fluid intake reduced [Unknown]
  - Skin exfoliation [Unknown]
  - Dry skin [Recovered/Resolved]
  - Skin discolouration [Recovered/Resolved]
  - Dyspnoea [Recovered/Resolved]
  - Rash [Recovered/Resolved]

NARRATIVE: CASE EVENT DATE: 20130319
